FAERS Safety Report 5739180-4 (Version None)
Quarter: 2008Q2

REPORT INFORMATION
  Report Type: 
  Country: None (occurrence: None)
  Receive Date: 20080515
  Receipt Date: 20080507
  Transmission Date: 20081010
  Serious: Yes (Other)
  Sender: FDA-Public Use
  Company Number: PHHY2008AU07294

PATIENT
  Age: 92 Year
  Sex: Female
  Weight: 60 kg

DRUGS (6)
  1. FAMCICLOVIR [Suspect]
     Indication: HIV INFECTION
     Dosage: 500 MG/DAY
     Route: 048
     Dates: start: 19991120, end: 19991201
  2. PRINIVIL [Concomitant]
  3. DICHLOTRIDE [Concomitant]
  4. NICOTINIC ACID [Concomitant]
  5. ACETAMINOPHEN [Concomitant]
  6. ACETAMINOPHEN W/ CODEINE [Concomitant]

REACTIONS (1)
  - INAPPROPRIATE ANTIDIURETIC HORMONE SECRETION [None]
